FAERS Safety Report 26110063 (Version 1)
Quarter: 2025Q4

REPORT INFORMATION
  Report Type: Spontaneous
  Country: EU (occurrence: EU)
  Receive Date: 20251201
  Receipt Date: 20251201
  Transmission Date: 20260117
  Serious: Yes (Hospitalization)
  Sender: BOEHRINGER INGELHEIM
  Company Number: EU-BoehringerIngelheim-2025-BI-110075

PATIENT
  Age: 83 Year
  Sex: Female
  Weight: 65 kg

DRUGS (8)
  1. EMPAGLIFLOZIN [Suspect]
     Active Substance: EMPAGLIFLOZIN
     Indication: Cardiac failure
     Dosage: IN THE MORNING
     Dates: start: 20241126, end: 202507
  2. EMPAGLIFLOZIN [Suspect]
     Active Substance: EMPAGLIFLOZIN
     Dosage: IN THE MORNING
     Dates: start: 20250909
  3. SPIRONOLACTONE [Concomitant]
     Active Substance: SPIRONOLACTONE
     Indication: Product used for unknown indication
     Dosage: IN THE MORNING
  4. BISOPROLOL [Concomitant]
     Active Substance: BISOPROLOL
     Indication: Product used for unknown indication
  5. Ramipril/Amlodipin 10mg/5mg [Concomitant]
     Indication: Product used for unknown indication
     Dosage: 1 CAPSULE IN THE EVENING
  6. Acetilsalicylic Acid [Concomitant]
     Indication: Product used for unknown indication
     Dosage: IN THE EVENING
  7. ROSUVASTATIN [Concomitant]
     Active Substance: ROSUVASTATIN
     Indication: Product used for unknown indication
     Dosage: IN THE EVENING
  8. PREVACID [Concomitant]
     Active Substance: LANSOPRAZOLE
     Indication: Product used for unknown indication
     Dosage: IN THE MORNING

REACTIONS (2)
  - Chest discomfort [Recovering/Resolving]
  - Band sensation [Recovering/Resolving]

NARRATIVE: CASE EVENT DATE: 20250205
